FAERS Safety Report 6207242-3 (Version None)
Quarter: 2009Q2

REPORT INFORMATION
  Report Type: 
  Country: None (occurrence: None)
  Receive Date: 20090522
  Receipt Date: 20090408
  Transmission Date: 20091009
  Serious: Yes (Hospitalization)
  Sender: FDA-Public Use
  Company Number: 8043146

PATIENT
  Age: 42 Year
  Sex: Male
  Weight: 77.11 kg

DRUGS (9)
  1. CIMZIA [Suspect]
     Indication: CROHN'S DISEASE
     Dosage: 400 MG SC
     Route: 058
     Dates: start: 20090119
  2. POTASSIUM CHLORIDE [Concomitant]
  3. DEPAKOTE ER [Concomitant]
  4. BUPROPION HCL [Concomitant]
  5. PREVACID [Concomitant]
  6. ZYRTEC [Concomitant]
  7. IRON [Concomitant]
  8. CALCIUM D [Concomitant]
  9. RISPERDAL [Concomitant]

REACTIONS (3)
  - HAEMOGLOBIN DECREASED [None]
  - PYREXIA [None]
  - RECTAL HAEMORRHAGE [None]
